FAERS Safety Report 5208653-5 (Version None)
Quarter: 2007Q1

REPORT INFORMATION
  Report Type: 
  Country: None (occurrence: None)
  Receive Date: 20070116
  Receipt Date: 20070103
  Transmission Date: 20070707
  Serious: Yes (Hospitalization)
  Sender: FDA-Public Use
  Company Number: PHBS2007IN00596

PATIENT
  Age: 46 Year
  Sex: Male

DRUGS (2)
  1. CLOZAPINE [Suspect]
     Indication: BIPOLAR DISORDER
     Route: 065
  2. CLOZAPINE [Suspect]
     Dosage: 50 MG/D
     Route: 065

REACTIONS (8)
  - ANGIOEDEMA [None]
  - BLISTER [None]
  - FLUSHING [None]
  - NEUTROPHIL COUNT INCREASED [None]
  - PERIORBITAL OEDEMA [None]
  - PYREXIA [None]
  - SKIN EXFOLIATION [None]
  - WHITE BLOOD CELL COUNT INCREASED [None]
